FAERS Safety Report 25713820 (Version 1)
Quarter: 2025Q3

REPORT INFORMATION
  Report Type: Spontaneous
  Country: AU (occurrence: AU)
  Receive Date: 20250822
  Receipt Date: 20250822
  Transmission Date: 20251021
  Serious: Yes (Other)
  Sender: ACCORD
  Company Number: None

PATIENT
  Age: 73 Year
  Sex: Male

DRUGS (2)
  1. METHOTREXATE [Suspect]
     Active Substance: METHOTREXATE
     Indication: Product used for unknown indication
  2. REMICADE [Suspect]
     Active Substance: INFLIXIMAB
     Indication: Product used for unknown indication

REACTIONS (6)
  - Off label use [Unknown]
  - Epstein Barr virus positive mucocutaneous ulcer [Unknown]
  - Gastrointestinal haemorrhage [Unknown]
  - Haemodynamic instability [Unknown]
  - Iron deficiency anaemia [Unknown]
  - Drug ineffective [Unknown]
